FAERS Safety Report 4774789-6 (Version None)
Quarter: 2005Q3

REPORT INFORMATION
  Report Type: 
  Country: None (occurrence: None)
  Receive Date: 20050919
  Receipt Date: 20050908
  Transmission Date: 20060218
  Serious: Yes (Other)
  Sender: FDA-Public Use
  Company Number: S05-USA-03294-01

PATIENT
  Age: 77 Year
  Sex: Female

DRUGS (6)
  1. LEXAPRO [Suspect]
     Indication: DEPRESSION
     Dosage: 10 MG QD PO
     Route: 048
     Dates: start: 20050301, end: 20050101
  2. NAMENDA [Suspect]
     Indication: COGNITIVE DISORDER
     Dosage: 10 MG BID PO
     Route: 048
     Dates: start: 20050101, end: 20050101
  3. NAMENDA [Suspect]
     Indication: COGNITIVE DISORDER
     Dosage: 5 MG QD PO
     Route: 048
     Dates: start: 20050201, end: 20050101
  4. NAMENDA [Suspect]
     Indication: COGNITIVE DISORDER
     Dosage: 5 MG BID PO
     Route: 048
     Dates: start: 20050101, end: 20050101
  5. NAMENDA [Suspect]
     Indication: COGNITIVE DISORDER
     Dosage: 15 MG QD PO
     Route: 048
     Dates: start: 20050101, end: 20050101
  6. ARICEPT [Suspect]
     Indication: COGNITIVE DISORDER
     Dosage: 10 MG QD
     Dates: end: 20050101

REACTIONS (10)
  - ANXIETY [None]
  - BASAL GANGLION DEGENERATION [None]
  - DRY MOUTH [None]
  - DYSARTHRIA [None]
  - NERVOUS SYSTEM DISORDER [None]
  - NERVOUSNESS [None]
  - NUCLEAR MAGNETIC RESONANCE IMAGING BRAIN ABNORMAL [None]
  - RESTLESSNESS [None]
  - SPEECH DISORDER [None]
  - TARDIVE DYSKINESIA [None]
